FAERS Safety Report 5470862-8 (Version None)
Quarter: 2007Q3

REPORT INFORMATION
  Report Type: 
  Country: None (occurrence: None)
  Receive Date: 20070928
  Receipt Date: 20070924
  Transmission Date: 20080115
  Serious: Yes (Hospitalization)
  Sender: FDA-Public Use
  Company Number: FR-AVENTIS-200713023FR

PATIENT
  Age: 63 Year
  Sex: Female

DRUGS (7)
  1. RIFADIN [Suspect]
     Indication: DEVICE RELATED INFECTION
     Route: 042
     Dates: start: 20070208, end: 20070220
  2. VANCOMYCIN [Suspect]
     Indication: DEVICE RELATED INFECTION
     Route: 042
     Dates: start: 20070206, end: 20070306
  3. CLAMOXYL                           /00249601/ [Suspect]
     Indication: DEVICE RELATED INFECTION
     Route: 042
     Dates: start: 20070222, end: 20070303
  4. LEXOMIL [Concomitant]
  5. INEXIUM [Concomitant]
  6. TAHOR [Concomitant]
  7. ATARAX                             /00058402/ [Concomitant]

REACTIONS (8)
  - CYTOLYTIC HEPATITIS [None]
  - DRUG RASH WITH EOSINOPHILIA AND SYSTEMIC SYMPTOMS [None]
  - EOSINOPHILIA [None]
  - HYPERSENSITIVITY [None]
  - HYPERTHERMIA [None]
  - PERSISTENT GENERALISED LYMPHADENOPATHY [None]
  - PYREXIA [None]
  - RASH MACULO-PAPULAR [None]
